FAERS Safety Report 14419964 (Version 2)
Quarter: 2018Q1

REPORT INFORMATION
  Report Type: Spontaneous
  Country: FR (occurrence: FR)
  Receive Date: 20180122
  Receipt Date: 20180222
  Transmission Date: 20180509
  Serious: Yes (Other)
  Sender: FDA-Public Use
  Company Number: FR-PFIZER INC-2018023712

PATIENT
  Age: 15 Year
  Sex: Female

DRUGS (5)
  1. VANCOMYCIN [Concomitant]
     Active Substance: VANCOMYCIN
     Indication: ANTIBIOTIC THERAPY
     Route: 042
  2. METRONIDAZOLE. [Concomitant]
     Active Substance: METRONIDAZOLE
     Indication: ANTIBIOTIC THERAPY
     Dosage: 1.5 G, DAILY
  3. AMOXICILLIN AND CLAVULANATE POTASSIUM [Suspect]
     Active Substance: AMOXICILLIN\CLAVULANATE POTASSIUM
     Indication: ANTIBIOTIC THERAPY
     Dosage: 3 G, DAILY
  4. GENTAMICIN. [Concomitant]
     Active Substance: GENTAMICIN
     Indication: ANTIBIOTIC THERAPY
     Dosage: UNK
  5. PIPERACILLIN/TAZOBACTAM [Suspect]
     Active Substance: PIPERACILLIN SODIUM\TAZOBACTAM SODIUM
     Indication: ANTIBIOTIC THERAPY
     Route: 042

REACTIONS (5)
  - Lung abscess [None]
  - Drug hypersensitivity [Recovered/Resolved]
  - Acute kidney injury [None]
  - Pyrexia [Recovered/Resolved]
  - Lemierre syndrome [None]
